FAERS Safety Report 13257754 (Version 4)
Quarter: 2018Q3

REPORT INFORMATION
  Report Type: Report from Study
  Country: AT (occurrence: AT)
  Receive Date: 20170221
  Receipt Date: 20180717
  Transmission Date: 20181010
  Serious: Yes (Hospitalization)
  Sender: FDA-Public Use
  Company Number: AT-INCYTE CORPORATION-2016IN000294

PATIENT

DRUGS (6)
  1. PARKEMED [Concomitant]
     Active Substance: MEFENAMIC ACID
     Indication: PRODUCT USED FOR UNKNOWN INDICATION
     Route: 065
  2. XYZALL [Concomitant]
     Active Substance: LEVOCETIRIZINE DIHYDROCHLORIDE
     Indication: PRURITUS
     Dosage: 5 MG, QD FOR SOME DAYS AFTERWARDS JUST IN CASE OF PRURITIS
     Route: 065
  3. PLATELETS [Concomitant]
     Active Substance: HUMAN PLATELET, ALLOGENIC
     Indication: PRODUCT USED FOR UNKNOWN INDICATION
     Dosage: UNK
     Route: 065
  4. JAKAVI [Suspect]
     Active Substance: RUXOLITINIB
     Indication: MYELOFIBROSIS
     Dosage: 5 MG, QD (MORNING)
     Route: 048
     Dates: start: 201303
  5. PANTOPRAZOL [Concomitant]
     Active Substance: PANTOPRAZOLE SODIUM
     Indication: PRODUCT USED FOR UNKNOWN INDICATION
     Dosage: 40 MG, QD, FOR TWO WEEKS
     Route: 065
  6. XYZALL [Concomitant]
     Active Substance: LEVOCETIRIZINE DIHYDROCHLORIDE

REACTIONS (21)
  - Blood glucose increased [Unknown]
  - Thrombocytopenia [Not Recovered/Not Resolved]
  - Cholestasis [Recovering/Resolving]
  - Haemoglobin decreased [Not Recovered/Not Resolved]
  - Neutropenia [Not Recovered/Not Resolved]
  - Abdominal pain upper [Unknown]
  - Epistaxis [Recovered/Resolved]
  - Diarrhoea [Recovered/Resolved]
  - Gamma-glutamyltransferase increased [Recovering/Resolving]
  - Amylase increased [Not Recovered/Not Resolved]
  - Pyrexia [Unknown]
  - Haematocrit decreased [Not Recovered/Not Resolved]
  - Lipase increased [Not Recovered/Not Resolved]
  - Lymphopenia [Unknown]
  - Blood alkaline phosphatase increased [Recovering/Resolving]
  - Epistaxis [Recovered/Resolved]
  - Red blood cell count decreased [Recovering/Resolving]
  - Leukopenia [Not Recovered/Not Resolved]
  - Bile duct stone [Recovered/Resolved]
  - Blood bilirubin increased [Recovering/Resolving]
  - Hypokalaemia [Recovered/Resolved]

NARRATIVE: CASE EVENT DATE: 20150318
